FAERS Safety Report 5430057-0 (Version None)
Quarter: 2007Q3

REPORT INFORMATION
  Report Type: 
  Country: None (occurrence: None)
  Receive Date: 20070829
  Receipt Date: 20070817
  Transmission Date: 20080115
  Serious: Yes (Disabling, Other)
  Sender: FDA-Public Use
  Company Number: PT-PFIZER INC-2007069295

PATIENT
  Age: 40 Year
  Sex: Male

DRUGS (3)
  1. LYRICA [Suspect]
     Indication: NEURALGIA
     Route: 048
  2. SERTRALINE [Concomitant]
  3. DOGMATIL [Concomitant]

REACTIONS (3)
  - ABASIA [None]
  - ASTHENIA [None]
  - BACK PAIN [None]
